FAERS Safety Report 9323008 (Version 1)
Quarter: 2013Q2

REPORT INFORMATION
  Report Type: Spontaneous
  Country: BR (occurrence: BR)
  Receive Date: 20130603
  Receipt Date: 20130603
  Transmission Date: 20140414
  Serious: Yes (Hospitalization, Other)
  Sender: FDA-Public Use
  Company Number: PHHY2013BR036888

PATIENT
  Sex: Female

DRUGS (2)
  1. APRESOLIN [Suspect]
     Dosage: 150 MG, DAILY
     Route: 048
  2. ATENOLOL [Suspect]
     Dosage: 50 MG, Q12H
     Route: 048

REACTIONS (10)
  - Diabetes mellitus [Unknown]
  - Diabetes mellitus inadequate control [Not Recovered/Not Resolved]
  - Myocardial infarction [Unknown]
  - Angina pectoris [Unknown]
  - Hyperhidrosis [Not Recovered/Not Resolved]
  - Malaise [Unknown]
  - Tremor [Not Recovered/Not Resolved]
  - Hypertension [Recovering/Resolving]
  - Headache [Not Recovered/Not Resolved]
  - Dizziness [Not Recovered/Not Resolved]
